FAERS Safety Report 14100885 (Version 1)
Quarter: 2017Q4

REPORT INFORMATION
  Report Type: Spontaneous
  Country: US (occurrence: None)
  Receive Date: 20171017
  Receipt Date: 20171017
  Transmission Date: 20180321
  Serious: Yes (Other)
  Sender: FDA-Public Use
  Company Number: None

PATIENT
  Age: 76 Year
  Sex: Female

DRUGS (2)
  1. METOPROLOL TARTRATE. [Suspect]
     Active Substance: METOPROLOL TARTRATE
     Indication: ATRIAL FIBRILLATION
     Route: 048
     Dates: start: 20150526, end: 20170904
  2. METOPROLOL TARTRATE. [Suspect]
     Active Substance: METOPROLOL TARTRATE
     Indication: CARDIAC FAILURE CONGESTIVE
     Route: 048
     Dates: start: 20150526, end: 20170904

REACTIONS (7)
  - Dry eye [None]
  - Swelling [None]
  - Throat tightness [None]
  - Pruritus [None]
  - Blindness [None]
  - Herpes zoster [None]
  - Corneal disorder [None]

NARRATIVE: CASE EVENT DATE: 20170904
